FAERS Safety Report 19309459 (Version 3)
Quarter: 2021Q3

REPORT INFORMATION
  Report Type: Spontaneous
  Country: US (occurrence: US)
  Receive Date: 20210526
  Receipt Date: 20210709
  Transmission Date: 20211014
  Serious: No
  Sender: FDA-Public Use
  Company Number: US-PFIZER INC-2021479342

PATIENT
  Age: 72 Year
  Sex: Female
  Weight: 72.57 kg

DRUGS (2)
  1. PREMARIN [Suspect]
     Active Substance: ESTROGENS, CONJUGATED
     Indication: INADEQUATE LUBRICATION
     Dosage: UNK
  2. PREMARIN [Concomitant]
     Active Substance: ESTROGENS, CONJUGATED
     Dosage: UNK, DAILY

REACTIONS (7)
  - Off label use [Unknown]
  - Expired product administered [Unknown]
  - Hot flush [Unknown]
  - Vaginal prolapse [Unknown]
  - Amnesia [Unknown]
  - Drug ineffective for unapproved indication [Unknown]
  - Breast pain [Unknown]
